FAERS Safety Report 4952530-1 (Version None)
Quarter: 2006Q1

REPORT INFORMATION
  Report Type: 
  Country: None (occurrence: None)
  Receive Date: 20060323
  Receipt Date: 20051215
  Transmission Date: 20060701
  Serious: Yes (Hospitalization)
  Sender: FDA-Public Use
  Company Number: US-MERCK-0512USA02601

PATIENT
  Sex: Male
  Weight: 102 kg

DRUGS (2)
  1. VIOXX [Suspect]
     Indication: ARTHRALGIA
     Route: 048
     Dates: start: 20011001, end: 20031225
  2. ASPIRIN [Concomitant]
     Route: 065

REACTIONS (4)
  - BACK DISORDER [None]
  - MYOCARDIAL INFARCTION [None]
  - NASAL DISORDER [None]
  - NASAL OPERATION [None]
